FAERS Safety Report 8840100 (Version 2)
Quarter: 2013Q1

REPORT INFORMATION
  Report Type: Report from Study
  Country: FR (occurrence: FR)
  Receive Date: 20121015
  Receipt Date: 20130306
  Transmission Date: 20140127
  Serious: Yes (Death, Hospitalization)
  Sender: FDA-Public Use
  Company Number: FR-ROCHE-593430

PATIENT
  Age: 67 Year
  Sex: Male

DRUGS (4)
  1. RITUXIMAB [Suspect]
     Indication: LYMPHOMA
     Dosage: FIRST CYCLE.
     Route: 042
  2. RITUXIMAB [Suspect]
     Dosage: DRUG REPORTED AS: MABTHERA ONCOLOGY, FORMULATION: INJECTABLE SOLUTION.?CYCLE 2, 3, 4, 5 AND 6.
     Route: 042
  3. ENDOXAN [Concomitant]
     Dosage: PATIENT RECEIVED CYCLOPHOSPHAMIDE IN CYCLE 1, 5 AND 6
     Route: 065
  4. FLUDARABINE [Concomitant]
     Dosage: PATIENT RECEIVED FLUDARABINE IN CYCLE 1, 5 AND 6.
     Route: 065

REACTIONS (1)
  - Metastases to liver [Fatal]
